FAERS Safety Report 22054437 (Version 1)
Quarter: 2023Q1

REPORT INFORMATION
  Report Type: Report from Study
  Country: US (occurrence: US)
  Receive Date: 20230302
  Receipt Date: 20230302
  Transmission Date: 20230418
  Serious: Yes (Other)
  Sender: FDA-Public Use
  Company Number: US-UCBSA-2023009706

PATIENT
  Sex: Female

DRUGS (9)
  1. LACOSAMIDE [Suspect]
     Active Substance: LACOSAMIDE
     Indication: Epilepsy
     Dosage: 200 MILLIGRAM, 2X/DAY (BID)
     Route: 048
  2. KEPPRA XR [Suspect]
     Active Substance: LEVETIRACETAM
     Indication: Product used for unknown indication
     Dosage: UNK
  3. PREGABALIN [Concomitant]
     Active Substance: PREGABALIN
     Indication: Product used for unknown indication
     Dosage: 150 MILLIGRAM, TAKE 1 CAPSULE (150 MG TOTAL) BY MOUTH NIGHTLY
     Route: 048
  4. PREGABALIN [Concomitant]
     Active Substance: PREGABALIN
     Dosage: 75 MILLIGRAM, 2X/DAY (BID)
     Route: 048
  5. ACETAMINOPHEN\HYDROCODONE [Concomitant]
     Active Substance: ACETAMINOPHEN\HYDROCODONE
     Indication: Pain
     Dosage: 325 MILLIGRAM, TAKE 1 TABLET BY MOUTH EVERY 6 (SIX) HOURS AS NEEDED, MAX DAILY AMOUNT: 4 TABLETS,
     Route: 048
  6. MAGNESIUM OXIDE [Concomitant]
     Active Substance: MAGNESIUM OXIDE
     Indication: Product used for unknown indication
     Dosage: 400 MILLIGRAM, 2X/DAY (BID)
     Route: 048
  7. PEPCID [Concomitant]
     Active Substance: FAMOTIDINE
     Indication: Product used for unknown indication
     Dosage: 20 MILLIGRAM, 2X/DAY (BID)
     Route: 048
  8. ZOLOFT [Concomitant]
     Active Substance: SERTRALINE HYDROCHLORIDE
     Indication: Product used for unknown indication
     Dosage: 100 MILLIGRAM, 2X/DAY (BID)
     Route: 048
  9. SYNTHROID [Concomitant]
     Active Substance: LEVOTHYROXINE SODIUM
     Indication: Product used for unknown indication
     Dosage: 50 MICROGRAM, ONCE DAILY (QD)
     Route: 048

REACTIONS (5)
  - Seizure [Unknown]
  - Platelet count decreased [Unknown]
  - Anaemia [Unknown]
  - Lower limb fracture [Unknown]
  - Fall [Unknown]
